FAERS Safety Report 12228070 (Version 2)
Quarter: 2016Q2

REPORT INFORMATION
  Report Type: Spontaneous
  Country: JP (occurrence: JP)
  Receive Date: 20160401
  Receipt Date: 20160426
  Transmission Date: 20160815
  Serious: Yes (Hospitalization)
  Sender: FDA-Public Use
  Company Number: JP-009507513-1603JPN012043

PATIENT
  Age: 82 Year
  Sex: Male

DRUGS (5)
  1. SOVALDI [Suspect]
     Active Substance: SOFOSBUVIR
     Indication: HEPATITIS C
     Dosage: 400 MG, QD (DIVIDED DOSE FREQUENCY UNKNOWN)
     Route: 048
     Dates: start: 20160209, end: 20160322
  2. REBETOL [Suspect]
     Active Substance: RIBAVIRIN
     Indication: HEPATITIS C
     Dosage: DAILY DOSAGE UNKNOWN
     Route: 048
     Dates: start: 20160209, end: 20160322
  3. KAMAG G [Concomitant]
     Active Substance: MAGNESIUM OXIDE
     Dosage: DAILY DOSAGE UNKNOWN, FORMULATION: POR
     Route: 048
  4. URSO [Concomitant]
     Active Substance: URSODIOL
     Dosage: FORMULATION: POR, DAILY DOSAGE UNKNOWN
     Route: 048
  5. ARTIST [Concomitant]
     Active Substance: CARVEDILOL
     Dosage: DAILY DOSAGE UNKNOWN, FORMULATION: POR
     Route: 048

REACTIONS (2)
  - Sinus bradycardia [Recovered/Resolved]
  - Abdominal discomfort [Unknown]

NARRATIVE: CASE EVENT DATE: 2016
